FAERS Safety Report 4320900-0 (Version None)
Quarter: 2004Q1

REPORT INFORMATION
  Report Type: 
  Country: None (occurrence: None)
  Receive Date: 20040322
  Receipt Date: 20040310
  Transmission Date: 20041129
  Serious: Yes (Hospitalization)
  Sender: FDA-Public Use
  Company Number: PHBS2004NL03449

PATIENT
  Age: 50 Year
  Sex: Male

DRUGS (1)
  1. LEPONEX [Suspect]
     Route: 048
     Dates: start: 20040208

REACTIONS (2)
  - PANCREATITIS [None]
  - POISONING [None]
